FAERS Safety Report 14830391 (Version 1)
Quarter: 2018Q2

REPORT INFORMATION
  Report Type: Spontaneous
  Country: US (occurrence: US)
  Receive Date: 20180430
  Receipt Date: 20180430
  Transmission Date: 20180711
  Serious: No
  Sender: FDA-Public Use
  Company Number: US-SA-2018SA057432

PATIENT
  Age: 81 Year
  Sex: Female

DRUGS (4)
  1. PRALUENT [Suspect]
     Active Substance: ALIROCUMAB
     Indication: ATRIAL FLUTTER
     Route: 058
     Dates: start: 201712, end: 201802
  2. ALIROCUMAB PREFILLED PEN [Suspect]
     Active Substance: ALIROCUMAB
     Indication: ATRIAL FIBRILLATION
     Dates: start: 201712, end: 201802
  3. PRALUENT [Suspect]
     Active Substance: ALIROCUMAB
     Indication: ATRIAL FIBRILLATION
     Route: 058
     Dates: start: 201712, end: 201802
  4. ALIROCUMAB PREFILLED PEN [Suspect]
     Active Substance: ALIROCUMAB
     Indication: ATRIAL FLUTTER
     Dates: start: 201712, end: 201802

REACTIONS (4)
  - Rash generalised [Recovered/Resolved]
  - Erythema [Recovered/Resolved]
  - Pruritus [Recovered/Resolved]
  - Burning sensation [Recovered/Resolved]
